FAERS Safety Report 18481399 (Version 2)
Quarter: 2020Q4

REPORT INFORMATION
  Report Type: Spontaneous
  Country: US (occurrence: US)
  Receive Date: 20201109
  Receipt Date: 20201125
  Transmission Date: 20210114
  Serious: Yes (Hospitalization, Disabling)
  Sender: FDA-Public Use
  Company Number: US-TEVA-2020-US-1846292

PATIENT
  Age: 24 Year
  Sex: Male

DRUGS (3)
  1. TAMSULOSIN [Suspect]
     Active Substance: TAMSULOSIN
     Indication: LOWER URINARY TRACT SYMPTOMS
  2. PHENYLEPHRINE [Suspect]
     Active Substance: PHENYLEPHRINE HYDROCHLORIDE
     Indication: PRIAPISM
     Route: 011
  3. TAMSULOSIN [Suspect]
     Active Substance: TAMSULOSIN
     Indication: NEPHROLITHIASIS
     Dosage: PILLS
     Route: 065

REACTIONS (4)
  - Therapy non-responder [Unknown]
  - Erectile dysfunction [Not Recovered/Not Resolved]
  - Priapism [Not Recovered/Not Resolved]
  - Off label use [Not Recovered/Not Resolved]
